FAERS Safety Report 6208978-0 (Version None)
Quarter: 2009Q2

REPORT INFORMATION
  Report Type: 
  Country: None (occurrence: None)
  Receive Date: 20090529
  Receipt Date: 20090519
  Transmission Date: 20091009
  Serious: Yes (Other)
  Sender: FDA-Public Use
  Company Number: PHHY2009JP19730

PATIENT
  Age: 58 Year
  Sex: Female

DRUGS (2)
  1. DIOVAN HCT [Suspect]
     Indication: HYPERTENSION
     Dosage: UNK
     Route: 048
  2. CONIEL [Concomitant]
     Indication: HYPERTENSION

REACTIONS (1)
  - ATRIAL FIBRILLATION [None]
